FAERS Safety Report 5473736-1 (Version None)
Quarter: 2007Q4

REPORT INFORMATION
  Report Type: 
  Country: None (occurrence: None)
  Receive Date: 20071001
  Receipt Date: 20040304
  Transmission Date: 20080405
  Serious: Yes (Hospitalization, Other)
  Sender: FDA-Public Use
  Company Number: US-PFIZER INC-2007056310

PATIENT
  Age: 39 Year
  Sex: Female

DRUGS (4)
  1. LITHIUM [Suspect]
     Indication: SCHIZOAFFECTIVE DISORDER
  2. ZOLOFT [Suspect]
     Indication: SCHIZOAFFECTIVE DISORDER
  3. CLOZARIL [Suspect]
     Indication: SCHIZOAFFECTIVE DISORDER
  4. DEXEDRINE [Suspect]

REACTIONS (2)
  - LOSS OF CONSCIOUSNESS [None]
  - WEIGHT INCREASED [None]
